FAERS Safety Report 5897598-3 (Version None)
Quarter: 2008Q3

REPORT INFORMATION
  Report Type: 
  Country: None (occurrence: None)
  Receive Date: 20080829
  Receipt Date: 20080429
  Transmission Date: 20090109
  Serious: Yes (Hospitalization)
  Sender: FDA-Public Use
  Company Number: PHEH2008US04113

PATIENT
  Age: 4 Year
  Sex: Male
  Weight: 12.6 kg

DRUGS (2)
  1. EXJADE [Suspect]
     Indication: IRON OVERLOAD
     Dosage: 375 MG, QD, ORAL
     Route: 048
     Dates: start: 20070701, end: 20080128
  2. PENICILLIN-VK [Suspect]
     Dosage: 250 MG, BID

REACTIONS (17)
  - ABDOMINAL PAIN [None]
  - BLOOD ALBUMIN DECREASED [None]
  - BLOOD CREATININE INCREASED [None]
  - BLOOD POTASSIUM DECREASED [None]
  - BLOOD PRESSURE DECREASED [None]
  - BLOOD UREA INCREASED [None]
  - COUGH [None]
  - DEHYDRATION [None]
  - DIARRHOEA [None]
  - NASAL CONGESTION [None]
  - OLIGURIA [None]
  - PROTEIN URINE PRESENT [None]
  - PYREXIA [None]
  - RENAL FAILURE ACUTE [None]
  - UPPER RESPIRATORY TRACT INFECTION [None]
  - URINE OUTPUT DECREASED [None]
  - VOMITING [None]
